FAERS Safety Report 4386460-3 (Version None)
Quarter: 2004Q2

REPORT INFORMATION
  Report Type: 
  Country: None (occurrence: None)
  Receive Date: 20040629
  Receipt Date: 20040621
  Transmission Date: 20050107
  Serious: Yes (Death, Hospitalization)
  Sender: FDA-Public Use
  Company Number: GB-ROCHE-371569

PATIENT
  Age: 75 Year
  Sex: Male

DRUGS (7)
  1. CAPECITABINE [Suspect]
     Indication: GASTROOESOPHAGEAL CANCER
     Dosage: GIVEN DAILY FOR TWENTY FOUR WEEKS.
     Route: 048
     Dates: start: 20040326, end: 20040524
  2. EPIRUBICIN [Suspect]
     Indication: GASTROOESOPHAGEAL CANCER
     Route: 040
     Dates: start: 20040326, end: 20040524
  3. OXALIPLATIN [Suspect]
     Indication: GASTROOESOPHAGEAL CANCER
     Route: 042
     Dates: start: 20040326, end: 20040524
  4. BECOTIDE [Concomitant]
  5. VENTOLIN [Concomitant]
  6. ZOTON [Concomitant]
  7. METOCLOPRAMIDE [Concomitant]

REACTIONS (9)
  - ASTHMA [None]
  - FATIGUE [None]
  - MALAISE [None]
  - NAUSEA [None]
  - PNEUMONIA ASPIRATION [None]
  - PULMONARY EMBOLISM [None]
  - SINUS TACHYCARDIA [None]
  - SUDDEN DEATH [None]
  - VOMITING [None]
